FAERS Safety Report 14624633 (Version 1)
Quarter: 2018Q1

REPORT INFORMATION
  Report Type: Spontaneous
  Country: US (occurrence: US)
  Receive Date: 20180311
  Receipt Date: 20180311
  Transmission Date: 20180509
  Serious: Yes (Disabling)
  Sender: FDA-Public Use
  Company Number: None

PATIENT
  Age: 79 Year
  Sex: Male
  Weight: 72 kg

DRUGS (7)
  1. BEVESPI AEROSPHERE [Suspect]
     Active Substance: FORMOTEROL FUMARATE\GLYCOPYRROLATE
     Indication: CHRONIC OBSTRUCTIVE PULMONARY DISEASE
     Route: 055
     Dates: start: 20171114, end: 20171117
  2. OXYGEN. [Concomitant]
     Active Substance: OXYGEN
  3. VITAMIN A [Concomitant]
     Active Substance: VITAMIN A
  4. ONE-A-DAY VITAMIN [Concomitant]
  5. VITAMIN D [Concomitant]
     Active Substance: CHOLECALCIFEROL
  6. SYMBICORT [Concomitant]
     Active Substance: BUDESONIDE\FORMOTEROL FUMARATE DIHYDRATE
  7. LO-DOSE ASPIRIN [Concomitant]

REACTIONS (4)
  - Dysuria [None]
  - Urinary retention [None]
  - Therapy cessation [None]
  - Urine flow decreased [None]

NARRATIVE: CASE EVENT DATE: 20171117
